FAERS Safety Report 8394856 (Version 2)
Quarter: 2019Q3

REPORT INFORMATION
  Report Type: Spontaneous
  Country: FR (occurrence: FR)
  Receive Date: 20120208
  Receipt Date: 20190809
  Transmission Date: 20191005
  Serious: Yes (Death, Other)
  Sender: FDA-Public Use
  Company Number: FR-RANBAXY-2012RR-52435

PATIENT
  Age: 27 Year
  Sex: Male

DRUGS (2)
  1. METHYLTESTOSTERONE. [Suspect]
     Active Substance: METHYLTESTOSTERONE
     Indication: PRODUCT USED FOR UNKNOWN INDICATION
     Route: 065
  2. FLUOXETINE [Suspect]
     Active Substance: FLUOXETINE HYDROCHLORIDE
     Indication: PRODUCT USED FOR UNKNOWN INDICATION
     Route: 065

REACTIONS (3)
  - Completed suicide [Fatal]
  - Aggression [Unknown]
  - Homicide [Unknown]
